FAERS Safety Report 11218120 (Version 1)
Quarter: 2015Q2

REPORT INFORMATION
  Report Type: Spontaneous
  Country: TW (occurrence: None)
  Receive Date: 20150623
  Receipt Date: 20150623
  Transmission Date: 20150821
  Serious: Yes (Other)
  Sender: FDA-Public Use
  Company Number: 2015JUB00177

PATIENT
  Age: 70 Year
  Sex: Female

DRUGS (3)
  1. TRAZODONE [Suspect]
     Active Substance: TRAZODONE HYDROCHLORIDE
     Indication: MAJOR DEPRESSION
  2. BUPROPION (BUPROPION) UNKNOWN [Suspect]
     Active Substance: BUPROPION
     Indication: MAJOR DEPRESSION
     Dosage: 150 MG, 1X/DAY
  3. QUETIAPINE (QUETIAPINE) UNKNOWN, UNKNOWN [Suspect]
     Active Substance: QUETIAPINE
     Indication: MAJOR DEPRESSION

REACTIONS (11)
  - Disorientation [None]
  - No therapeutic response [None]
  - Serotonin syndrome [None]
  - Disorganised speech [None]
  - Depression [None]
  - Psychotic disorder [None]
  - Hallucination, auditory [None]
  - Confusional state [None]
  - Delusion [None]
  - Drug interaction [None]
  - Agitation [None]
